FAERS Safety Report 7135212 (Version 2)
Quarter: 2013Q1

REPORT INFORMATION
  Report Type: Spontaneous
  Country: DE (occurrence: DE)
  Receive Date: 20090930
  Receipt Date: 20130319
  Transmission Date: 20140127
  Serious: Yes (Death)
  Sender: FDA-Public Use
  Company Number: DE-JNJFOC-20090802351

PATIENT
  Age: 71 Year
  Sex: Male

DRUGS (2)
  1. MOTRIN [Suspect]
     Indication: ARTHRALGIA
     Dosage: 4 WEEKS PRIOR TO DEATH
     Route: 048
  2. GINKGO BILOBA LEAF EXTRACT [Interacting]
     Indication: DIZZINESS
     Dosage: ^FOR AT LEAST 2 YRS + 6 MOS^
     Route: 065

REACTIONS (3)
  - Death [Fatal]
  - Cerebral haemorrhage [Fatal]
  - Drug interaction [Fatal]
